FAERS Safety Report 5036179-0 (Version None)
Quarter: 2006Q2

REPORT INFORMATION
  Report Type: 
  Country: None (occurrence: None)
  Receive Date: 20060627
  Receipt Date: 20060620
  Transmission Date: 20061013
  Serious: Yes (Hospitalization)
  Sender: FDA-Public Use
  Company Number: US-MERCK-0606USA03514

PATIENT
  Age: 86 Year
  Sex: Female

DRUGS (3)
  1. ZOCOR [Suspect]
     Indication: BLOOD CHOLESTEROL INCREASED
     Route: 048
     Dates: end: 20050101
  2. ZOCOR [Suspect]
     Route: 048
     Dates: end: 20060101
  3. TOPROL-XL [Concomitant]
     Route: 065

REACTIONS (3)
  - BLOOD CHOLESTEROL INCREASED [None]
  - CARDIAC FIBRILLATION [None]
  - TRANSIENT ISCHAEMIC ATTACK [None]
